FAERS Safety Report 13165186 (Version 7)
Quarter: 2017Q2

REPORT INFORMATION
  Report Type: Report from Study
  Country: AU (occurrence: AU)
  Receive Date: 20170130
  Receipt Date: 20170425
  Transmission Date: 20170830
  Serious: Yes (Hospitalization)
  Sender: FDA-Public Use
  Company Number: AU-ROCHE-1885110

PATIENT
  Age: 71 Year
  Sex: Female
  Weight: 80 kg

DRUGS (35)
  1. OBINUTUZUMAB [Suspect]
     Active Substance: OBINUTUZUMAB
     Dosage: AT 11:15, PLANNED DOSE AND DOSE PER ADMINISTRATION WAS 1000 MG, TOTAL VOLUME 336 ML AT A 100 ML/HR R
     Route: 042
     Dates: start: 20170118, end: 20170118
  2. BGB-3111 [Suspect]
     Active Substance: INVESTIGATIONAL PRODUCT
     Route: 048
     Dates: start: 20161123, end: 20161220
  3. BGB-3111 [Suspect]
     Active Substance: INVESTIGATIONAL PRODUCT
     Route: 048
     Dates: start: 20161221, end: 20170117
  4. BGB-3111 [Suspect]
     Active Substance: INVESTIGATIONAL PRODUCT
     Route: 048
     Dates: start: 20170215, end: 20170314
  5. COLOXYL WITH SENNA [Concomitant]
     Active Substance: DOCUSATE\SENNOSIDES
     Indication: PROPHYLAXIS
     Dosage: 2 TABLETS
     Route: 048
     Dates: start: 20170124
  6. AMOXICILLIN. [Concomitant]
     Active Substance: AMOXICILLIN
     Dosage: 1 TABLET
     Route: 048
     Dates: start: 20161214, end: 20161221
  7. ATENOLOL. [Concomitant]
     Active Substance: ATENOLOL
     Route: 065
  8. RABEPRAZOLE [Concomitant]
     Active Substance: RABEPRAZOLE
     Route: 065
  9. TARGIN [Concomitant]
     Active Substance: NALOXONE HYDROCHLORIDE\OXYCODONE HYDROCHLORIDE
     Dosage: 20/10 MG
     Route: 048
     Dates: start: 20170125
  10. TARGIN [Concomitant]
     Active Substance: NALOXONE HYDROCHLORIDE\OXYCODONE HYDROCHLORIDE
     Dosage: 10/5 MG
     Route: 048
     Dates: start: 20170125, end: 20170125
  11. TAPENTADOL [Concomitant]
     Active Substance: TAPENTADOL
     Route: 048
     Dates: start: 20170125
  12. OBINUTUZUMAB [Suspect]
     Active Substance: OBINUTUZUMAB
     Indication: DIFFUSE LARGE B-CELL LYMPHOMA REFRACTORY
     Dosage: AT 14:05, PLANNED DOSE AND DOSE PER ADMINISTRATION WAS 100 MG, TOTAL VOLUME 104 ML AT A 25 ML/HR RAT
     Route: 042
     Dates: start: 20161026, end: 20161026
  13. BGB-3111 [Suspect]
     Active Substance: INVESTIGATIONAL PRODUCT
     Indication: DIFFUSE LARGE B-CELL LYMPHOMA REFRACTORY
     Dosage: SHE RECEIVED 4 CAPSULES (WHITE) 80 MG EACH, ON 23/JAN/2017, SHE RECEIVED MOST RECENT DOSE, CYCLE 1
     Route: 048
     Dates: start: 20161026, end: 20161122
  14. AMLODIPINE [Concomitant]
     Active Substance: AMLODIPINE BESYLATE
     Route: 065
  15. BGB-3111 [Suspect]
     Active Substance: INVESTIGATIONAL PRODUCT
     Route: 048
     Dates: start: 20170315
  16. PARACETAMOL [Concomitant]
     Active Substance: ACETAMINOPHEN
     Route: 065
  17. ENDONE [Concomitant]
     Active Substance: OXYCODONE HYDROCHLORIDE
     Route: 048
     Dates: start: 20170123
  18. BGB-3111 [Suspect]
     Active Substance: INVESTIGATIONAL PRODUCT
     Route: 048
     Dates: start: 20170118, end: 20170214
  19. PREGABALIN. [Concomitant]
     Active Substance: PREGABALIN
     Route: 065
  20. TARGIN [Concomitant]
     Active Substance: NALOXONE HYDROCHLORIDE\OXYCODONE HYDROCHLORIDE
     Dosage: 5/2.5 MG
     Route: 048
     Dates: start: 2015, end: 20170124
  21. AUGMENTIN [Concomitant]
     Active Substance: AMOXICILLIN\CLAVULANATE POTASSIUM
     Dosage: 1 TABLET
     Route: 048
     Dates: start: 20170210, end: 20170215
  22. OBINUTUZUMAB [Suspect]
     Active Substance: OBINUTUZUMAB
     Dosage: AT 11:33, PLANNED DOSE AND DOSE PER ADMINISTRATION WAS 1000 MG, TOTAL VOLUME 286 ML AT A 33 ML/HR RA
     Route: 042
     Dates: start: 20161109, end: 20161109
  23. OBINUTUZUMAB [Suspect]
     Active Substance: OBINUTUZUMAB
     Dosage: AT 10:45, PLANNED DOSE AND DOSE PER ADMINISTRATION WAS 1000 MG, TOTAL VOLUME 330 ML AT A 33 ML/HR RA
     Route: 042
     Dates: start: 20161123, end: 20161123
  24. IRBESARTAN. [Concomitant]
     Active Substance: IRBESARTAN
     Route: 065
  25. GLICLAZIDE [Concomitant]
     Active Substance: GLICLAZIDE
     Route: 065
  26. ATORVASTATIN [Concomitant]
     Active Substance: ATORVASTATIN
     Route: 065
  27. OBINUTUZUMAB [Suspect]
     Active Substance: OBINUTUZUMAB
     Dosage: AT 15:42, PLANNED DOSE AND DOSE PER ADMINISTRATION WAS 900 MG, TOTAL VOLUME 286 ML AT A 16 ML/HR RAT
     Route: 042
     Dates: start: 20161027, end: 20161027
  28. OBINUTUZUMAB [Suspect]
     Active Substance: OBINUTUZUMAB
     Dosage: AT 12:10, PLANNED DOSE AND DOSE PER ADMINISTRATION WAS 1000 MG, TOTAL VOLUME 286 ML AT A 33 ML/HR RA
     Route: 042
     Dates: start: 20161102, end: 20161102
  29. OBINUTUZUMAB [Suspect]
     Active Substance: OBINUTUZUMAB
     Dosage: AT 14:20, PLANNED DOSE AND DOSE PER ADMINISTRATION WAS 1000 MG, TOTAL VOLUME 336 ML AT A 100 ML/HR R
     Route: 042
     Dates: start: 20161221, end: 20161221
  30. OBINUTUZUMAB [Suspect]
     Active Substance: OBINUTUZUMAB
     Dosage: AT 11:40, PLANNED DOSE AND DOSE PER ADMINISTRATION WAS 1000 MG, TOTAL VOLUME 336 ML AT A 100 ML/HR R
     Route: 042
     Dates: start: 20170215, end: 20170215
  31. VENLAFAXINE [Concomitant]
     Active Substance: VENLAFAXINE HYDROCHLORIDE
     Route: 065
  32. METFORMIN [Concomitant]
     Active Substance: METFORMIN HYDROCHLORIDE
     Route: 065
  33. LYRICA [Concomitant]
     Active Substance: PREGABALIN
     Route: 065
     Dates: start: 20170124
  34. OBINUTUZUMAB [Suspect]
     Active Substance: OBINUTUZUMAB
     Dosage: AT 11:55, PLANNED DOSE AND DOSE PER ADMINISTRATION WAS 1000 MG, TOTAL VOLUME 330 ML AT A 100 ML/HR R
     Route: 042
     Dates: start: 20170315, end: 20170315
  35. ENDONE [Concomitant]
     Active Substance: OXYCODONE HYDROCHLORIDE
     Route: 065

REACTIONS (1)
  - Presyncope [Recovered/Resolved]

NARRATIVE: CASE EVENT DATE: 20170123
